FAERS Safety Report 6058069-7 (Version None)
Quarter: 2009Q1

REPORT INFORMATION
  Report Type: 
  Country: None (occurrence: None)
  Receive Date: 20090127
  Receipt Date: 20090117
  Transmission Date: 20090719
  Serious: Yes (Other)
  Sender: FDA-Public Use
  Company Number: CHPA2009US00745

PATIENT
  Sex: Male

DRUGS (4)
  1. TRIAMINIC SOFTCHEWS COUGH + RUNNY NOSE CHERRY (DEXTROMETHORPHAN HYDROB [Suspect]
     Indication: COUGH
     Dosage: UNK, PRN, ORAL, UNK, PRN, ORAL
     Route: 048
     Dates: start: 20070301, end: 20070301
  2. TRIAMINIC SOFTCHEWS COUGH + RUNNY NOSE CHERRY (DEXTROMETHORPHAN HYDROB [Suspect]
     Indication: RHINORRHOEA
     Dosage: UNK, PRN, ORAL, UNK, PRN, ORAL
     Route: 048
     Dates: start: 20070301, end: 20070301
  3. TRIAMINIC SOFTCHEWS COUGH + RUNNY NOSE CHERRY (DEXTROMETHORPHAN HYDROB [Suspect]
     Indication: COUGH
     Dosage: UNK, PRN, ORAL, UNK, PRN, ORAL
     Route: 048
     Dates: start: 20081201, end: 20081201
  4. TRIAMINIC SOFTCHEWS COUGH + RUNNY NOSE CHERRY (DEXTROMETHORPHAN HYDROB [Suspect]
     Indication: RHINORRHOEA
     Dosage: UNK, PRN, ORAL, UNK, PRN, ORAL
     Route: 048
     Dates: start: 20081201, end: 20081201

REACTIONS (1)
  - CONVULSION [None]
